FAERS Safety Report 8048477 (Version 2)
Quarter: 2012Q4

REPORT INFORMATION
  Report Type: 
  Country: US (occurrence: US)
  Receive Date: 20110722
  Receipt Date: 20121224
  Transmission Date: 20130627
  Serious: Yes (Hospitalization)
  Sender: FDA-Public Use
  Company Number: US-BIOGENIDEC-2011BI025892

PATIENT
  Age: 35 Year
  Sex: Female

DRUGS (4)
  1. TYSABRI [Suspect]
     Indication: MULTIPLE SCLEROSIS
     Route: 042
     Dates: start: 20070808
  2. RITALIN [Concomitant]
     Indication: FATIGUE
  3. NU-VIGIL [Concomitant]
     Indication: FATIGUE
  4. PROVIGIL [Concomitant]
     Indication: FATIGUE

REACTIONS (3)
  - Complication of device insertion [Recovered/Resolved]
  - Catheter site related reaction [Recovered/Resolved]
  - Vein disorder [Not Recovered/Not Resolved]
